FAERS Safety Report 14635337 (Version 1)
Quarter: 2018Q1

REPORT INFORMATION
  Report Type: Spontaneous
  Country: US (occurrence: US)
  Receive Date: 20180314
  Receipt Date: 20180314
  Transmission Date: 20180509
  Serious: No
  Sender: FDA-Public Use
  Company Number: US-CELGENEUS-USA-20180303953

PATIENT
  Age: 74 Year
  Sex: Female

DRUGS (1)
  1. OTEZLA [Suspect]
     Active Substance: APREMILAST
     Indication: PSORIASIS
     Dosage: 60 MILLIGRAM
     Route: 048
     Dates: start: 20180303

REACTIONS (12)
  - Pain [Unknown]
  - Asthenia [Unknown]
  - Headache [Unknown]
  - Gingival swelling [Unknown]
  - Feeling abnormal [Unknown]
  - Arthralgia [Unknown]
  - Rash macular [Unknown]
  - Ear discomfort [Unknown]
  - Eye infection [Unknown]
  - Decreased appetite [Unknown]
  - Frequent bowel movements [Unknown]
  - Pruritus [Unknown]

NARRATIVE: CASE EVENT DATE: 201803
